FAERS Safety Report 8799800 (Version 1)
Quarter: 2012Q4

REPORT INFORMATION
  Report Type: Spontaneous
  Country: US (occurrence: None)
  Receive Date: 20120917
  Receipt Date: 20120917
  Transmission Date: 20130627
  Serious: Yes (Other)
  Sender: FDA-Public Use
  Company Number: ADE12-088

PATIENT
  Age: 72 Year
  Sex: Female
  Weight: 72.58 kg

DRUGS (4)
  1. ROCURONIUM [Suspect]
     Indication: ELECTIVE SURGERY
     Route: 042
     Dates: start: 20120904, end: 20120904
  2. ONDANSETRON 4 MG [Concomitant]
  3. NEOSTIGMINE [Concomitant]
  4. GLYCOPYRROLATE 0.2 MG [Concomitant]

REACTIONS (1)
  - Drug effect prolonged [None]
